FAERS Safety Report 4567046-4 (Version None)
Quarter: 2005Q1

REPORT INFORMATION
  Report Type: 
  Country: None (occurrence: None)
  Receive Date: 20050201
  Receipt Date: 20041216
  Transmission Date: 20050727
  Serious: Yes (Other)
  Sender: FDA-Public Use
  Company Number: US-BRISTOL-MYERS SQUIBB COMPANY-12797981

PATIENT
  Age: 52 Year
  Sex: Female

DRUGS (9)
  1. STADOL [Suspect]
     Route: 045
     Dates: start: 19981123
  2. ACETAMINOPHEN AND CODEINE PHOSPHATE [Concomitant]
  3. IBUPROFEN [Concomitant]
  4. PROMETHAZINE [Concomitant]
  5. BUTALBITAL+APAP+CAFFEINE [Concomitant]
  6. OXYCONTIN [Concomitant]
  7. NEURONTIN [Concomitant]
  8. CARISOPRODOL [Concomitant]
  9. DEXAMETHASONE [Concomitant]

REACTIONS (1)
  - DEPENDENCE [None]
